FAERS Safety Report 5906766-3 (Version None)
Quarter: 2008Q3

REPORT INFORMATION
  Report Type: 
  Country: None (occurrence: None)
  Receive Date: 20080930
  Receipt Date: 20080915
  Transmission Date: 20090109
  Serious: Yes (Other)
  Sender: FDA-Public Use
  Company Number: 2008S1016907

PATIENT
  Age: 60 Year
  Sex: Male

DRUGS (8)
  1. BISOPROLOL FUMARATE [Suspect]
     Indication: VENTRICULAR TACHYCARDIA
     Dosage: 2.5 MG;, 5 MG;
     Dates: start: 20040101
  2. AMIODARONE [Concomitant]
  3. ASPIRIN [Concomitant]
  4. CITALOPRAM HYDROBROMIDE [Concomitant]
  5. DOSULEPIN [Concomitant]
  6. LANSOPRAZOLE [Concomitant]
  7. NICORANDIL [Concomitant]
  8. PRAVASTATIN [Concomitant]

REACTIONS (1)
  - ALVEOLITIS FIBROSING [None]
